FAERS Safety Report 5406900-8 (Version None)
Quarter: 2007Q3

REPORT INFORMATION
  Report Type: 
  Country: None (occurrence: None)
  Receive Date: 20070802
  Receipt Date: 20070726
  Transmission Date: 20080115
  Serious: Yes (Hospitalization)
  Sender: FDA-Public Use
  Company Number: GRT 2007-12880

PATIENT
  Age: 67 Year
  Sex: Female
  Weight: 72 kg

DRUGS (1)
  1. LIDOCAINE [Suspect]
     Indication: NEURALGIA
     Dates: start: 20070702, end: 20070712

REACTIONS (1)
  - MENINGITIS [None]
